FAERS Safety Report 6771308-X (Version None)
Quarter: 2010Q2

REPORT INFORMATION
  Report Type: 
  Country: None (occurrence: None)
  Receive Date: 20100616
  Receipt Date: 20100607
  Transmission Date: 20101027
  Serious: Yes (Hospitalization)
  Sender: FDA-Public Use
  Company Number: US-ASTRAZENECA-2010SE26660

PATIENT

DRUGS (3)
  1. LISINOPRIL [Suspect]
     Route: 048
  2. IRBESARTAN [Interacting]
  3. POTASSIUM [Interacting]

REACTIONS (2)
  - DRUG INTERACTION [None]
  - HYPERKALAEMIA [None]
